FAERS Safety Report 16672914 (Version 1)
Quarter: 2019Q3

REPORT INFORMATION
  Report Type: Spontaneous
  Country: ES (occurrence: ES)
  Receive Date: 20190806
  Receipt Date: 20190806
  Transmission Date: 20191004
  Serious: Yes (Other)
  Sender: FDA-Public Use
  Company Number: ES-009507513-1907ESP016011

PATIENT
  Age: 84 Year
  Sex: Male
  Weight: 70 kg

DRUGS (2)
  1. LEVOFLOXACIN. [Suspect]
     Active Substance: LEVOFLOXACIN
     Indication: CHOLECYSTITIS ACUTE
     Dosage: 500 MILLIGRAM, QD, FORMULATION: 500 MG GENERIC FILM-COATED TABLETS, 200 TABLETS
     Route: 048
     Dates: start: 20190628
  2. INVANZ [Suspect]
     Active Substance: ERTAPENEM SODIUM
     Indication: CHOLECYSTITIS ACUTE
     Dosage: 1 GRAM, QD
     Route: 042
     Dates: start: 20190626

REACTIONS (1)
  - Confusional state [Recovering/Resolving]

NARRATIVE: CASE EVENT DATE: 20190703
